FAERS Safety Report 5493152-6 (Version None)
Quarter: 2007Q4

REPORT INFORMATION
  Report Type: 
  Country: None (occurrence: None)
  Receive Date: 20071019
  Receipt Date: 20071003
  Transmission Date: 20080405
  Serious: Yes (Hospitalization)
  Sender: FDA-Public Use
  Company Number: 2007JP004625

PATIENT
  Age: 71 Year
  Sex: Male
  Weight: 29 kg

DRUGS (3)
  1. TACROLIMUS [Suspect]
     Indication: RHEUMATOID ARTHRITIS
     Dosage: 1 MG, ORAL; 2 MG, ORAL
     Route: 048
     Dates: start: 20050513, end: 20050609
  2. TACROLIMUS [Suspect]
     Indication: RHEUMATOID ARTHRITIS
     Dosage: 1 MG, ORAL; 2 MG, ORAL
     Route: 048
     Dates: start: 20050610
  3. MOBIC [Suspect]
     Indication: RHEUMATOID ARTHRITIS
     Dosage: 10 MG, QOD, ORAL
     Route: 048

REACTIONS (1)
  - ARTHRITIS INFECTIVE [None]
